FAERS Safety Report 9476889 (Version 1)
Quarter: 2013Q3

REPORT INFORMATION
  Report Type: Report from Study
  Country: US (occurrence: US)
  Receive Date: 20130826
  Receipt Date: 20130826
  Transmission Date: 20140515
  Serious: Yes (Other)
  Sender: FDA-Public Use
  Company Number: US-GLAXOSMITHKLINE-A1038797A

PATIENT
  Age: 63 Year
  Sex: Female
  Weight: 114 kg

DRUGS (5)
  1. PAZOPANIB [Suspect]
     Indication: RENAL CELL CARCINOMA
     Dosage: 800MG PER DAY
     Route: 048
     Dates: start: 20130712
  2. CHLORTHALIDONE [Concomitant]
     Dosage: 25MG PER DAY
  3. OXYCODONE [Concomitant]
     Dosage: 5MG AS REQUIRED
  4. POTASSIUM [Concomitant]
  5. COMPAZINE [Concomitant]

REACTIONS (2)
  - Aspartate aminotransferase increased [Unknown]
  - Alanine aminotransferase increased [Unknown]
